FAERS Safety Report 12856857 (Version 1)
Quarter: 2016Q4

REPORT INFORMATION
  Report Type: Spontaneous
  Country: US (occurrence: US)
  Receive Date: 20161018
  Receipt Date: 20161018
  Transmission Date: 20170207
  Serious: No
  Sender: FDA-Public Use
  Company Number: None

PATIENT
  Age: 69 Year
  Sex: Male

DRUGS (1)
  1. REBIF [Suspect]
     Active Substance: INTERFERON BETA-1A
     Dosage: ?          OTHER FREQUENCY:3 TIMES A WEEK;?
     Route: 058

REACTIONS (1)
  - Incorrect product storage [None]

NARRATIVE: CASE EVENT DATE: 20160906
